FAERS Safety Report 10340871 (Version 2)
Quarter: 2014Q3

REPORT INFORMATION
  Report Type: Spontaneous
  Country: BR (occurrence: BR)
  Receive Date: 20140724
  Receipt Date: 20140724
  Transmission Date: 20150326
  Serious: Yes (Other)
  Sender: FDA-Public Use
  Company Number: BR-ABBVIE-14P-020-1218692-00

PATIENT
  Age: 63 Year
  Sex: Male
  Weight: 104 kg

DRUGS (10)
  1. ALL OTHER THERAPEUTIC PRODUCTS [Concomitant]
     Active Substance: UNSPECIFIED INGREDIENT
     Indication: DIABETES MELLITUS
     Dosage: DAILY DOSE: 60 MG; AT 7:00AM AND AFTER LUNCH
     Route: 048
  2. LOSARTAN POTASSIUM. [Concomitant]
     Active Substance: LOSARTAN POTASSIUM
     Indication: MICTURITION DISORDER
     Dosage: DAILY DOSE: 25 MG; HALF TABET AT 7:00AM
     Route: 048
  3. PROLOPA [Concomitant]
     Active Substance: BENSERAZIDE\LEVODOPA
     Indication: PRODUCT USED FOR UNKNOWN INDICATION
     Dosage: DAILY DOSE: 6 TABLETS; FORM STRENGTH: 100MG + 25MG; AT 8:00AM, AT 1:00PM AND AT 7:00PM
     Route: 048
  4. EPILENIL [Concomitant]
     Active Substance: VALPROIC ACID
     Indication: BIPOLAR DISORDER
     Dosage: DAILY DOSE: 1000 MG; AT 8:00AM AND AT 8:00PM
     Route: 048
     Dates: start: 2009
  5. ALL OTHER THERAPEUTIC PRODUCTS [Concomitant]
     Active Substance: UNSPECIFIED INGREDIENT
     Indication: CARDIAC DISORDER
     Dosage: 25 MG ; AT 7:00AM
     Route: 048
  6. EPILENIL [Concomitant]
     Active Substance: VALPROIC ACID
     Indication: PRODUCT USED FOR UNKNOWN INDICATION
     Dosage: DAILY DOSE: 1000 MG; AT 8:00AM AND AT 8:00PM
     Route: 048
     Dates: start: 20140505
  7. DEPAKENE [Suspect]
     Active Substance: VALPROIC ACID
     Indication: BIPOLAR DISORDER
     Dosage: 1000 MG DAILY;AT 8:00AM AND AT 8:00PM
     Route: 048
     Dates: end: 20140505
  8. CARVEDILOL. [Concomitant]
     Active Substance: CARVEDILOL
     Indication: CARDIAC DISORDER
     Dosage: DAILY DOSE: 25 MG DAILY; AT 7:00AM AND AT 7:00PM
     Route: 048
  9. INSULIN [Concomitant]
     Active Substance: INSULIN NOS
     Indication: DIABETES MELLITUS
     Dosage: DAILY DOSE: 14 UNITS; 10 UNITS AT 7:00AM AND 4 UNITS AT 4:00PM
     Route: 058
  10. DIGOXIN. [Concomitant]
     Active Substance: DIGOXIN
     Indication: BLOOD PRESSURE
     Dosage: DAILY DOSE: 0.125 MG; HALF TABLET PER DAY
     Route: 048

REACTIONS (13)
  - Bipolar disorder [Recovered/Resolved]
  - Product quality issue [Unknown]
  - Tremor [Not Recovered/Not Resolved]
  - Nervousness [Recovered/Resolved]
  - Bipolar disorder [Recovered/Resolved]
  - Fatigue [Not Recovered/Not Resolved]
  - Nervousness [Recovered/Resolved]
  - Anticonvulsant drug level decreased [Recovered/Resolved]
  - Diabetes mellitus [Recovered/Resolved]
  - Agitation [Recovered/Resolved]
  - Off label use [Unknown]
  - Cardiomegaly [Unknown]
  - Agitation [Recovered/Resolved]

NARRATIVE: CASE EVENT DATE: 2011
